FAERS Safety Report 22629487 (Version 1)
Quarter: 2023Q2

REPORT INFORMATION
  Report Type: Report from Study
  Country: US (occurrence: US)
  Receive Date: 20230622
  Receipt Date: 20230622
  Transmission Date: 20230722
  Serious: Yes (Death, Hospitalization, Other)
  Sender: FDA-Public Use
  Company Number: US-TAKEDA-US201810792

PATIENT
  Age: 34 Year
  Sex: Male

DRUGS (45)
  1. IDURSULFASE [Suspect]
     Active Substance: IDURSULFASE
     Indication: Mucopolysaccharidosis II
     Dosage: UNK
     Route: 042
     Dates: start: 20111207
  2. IDURSULFASE [Suspect]
     Active Substance: IDURSULFASE
     Dosage: UNK UNK, 1/WEEK
     Route: 042
     Dates: start: 20151029
  3. NASONEX [Concomitant]
     Active Substance: MOMETASONE FUROATE
     Indication: Product used for unknown indication
     Dosage: UNK
     Route: 045
     Dates: start: 2013
  4. OXYCODONE [Concomitant]
     Active Substance: OXYCODONE
     Indication: Pain
     Dosage: UNK
     Route: 048
     Dates: start: 2013
  5. ADVAIR HFA [Concomitant]
     Active Substance: FLUTICASONE PROPIONATE\SALMETEROL XINAFOATE
     Indication: Product used for unknown indication
     Dosage: UNK
     Route: 055
     Dates: start: 2013
  6. BUPROPION [Concomitant]
     Active Substance: BUPROPION
     Indication: Product used for unknown indication
     Dosage: UNK
     Route: 048
     Dates: start: 2013
  7. BUSPAR [Concomitant]
     Active Substance: BUSPIRONE HYDROCHLORIDE
     Indication: Depression
     Dosage: UNK
     Route: 048
     Dates: start: 2005
  8. ZOLOFT [Concomitant]
     Active Substance: SERTRALINE HYDROCHLORIDE
     Indication: Depression
     Dosage: UNK
     Route: 048
     Dates: start: 2005, end: 200510
  9. VALIUM [Concomitant]
     Active Substance: DIAZEPAM
     Indication: Anxiety
     Dosage: UNK
     Route: 048
     Dates: start: 2013, end: 201305
  10. LYRICA [Concomitant]
     Active Substance: PREGABALIN
     Indication: Product used for unknown indication
     Dosage: UNK
     Route: 048
     Dates: start: 2013, end: 201305
  11. LIDOCAN [Concomitant]
     Indication: Pain
     Dosage: UNK
     Route: 062
     Dates: start: 2013, end: 201305
  12. PROMETHAZINE [Concomitant]
     Active Substance: PROMETHAZINE HYDROCHLORIDE
     Indication: Product used for unknown indication
     Dosage: UNK
     Route: 048
     Dates: start: 2013, end: 201305
  13. TYLENOL [Concomitant]
     Active Substance: ACETAMINOPHEN
     Indication: Product used for unknown indication
     Dosage: UNK
     Route: 048
     Dates: start: 2013, end: 201305
  14. LASIX [Concomitant]
     Active Substance: FUROSEMIDE
     Indication: Pulmonary oedema
     Dosage: UNK
     Route: 048
     Dates: start: 20130326, end: 20130330
  15. ACETAMINOPHEN [Concomitant]
     Active Substance: ACETAMINOPHEN
     Indication: Pain prophylaxis
     Dosage: UNK
     Route: 048
     Dates: start: 20180318, end: 20180318
  16. ACETAMINOPHEN [Concomitant]
     Active Substance: ACETAMINOPHEN
     Indication: Pyrexia
     Dosage: UNK
     Route: 050
     Dates: start: 20180319, end: 20180319
  17. NOREPINEPHRINE [Concomitant]
     Active Substance: NOREPINEPHRINE
     Indication: Hypotension
     Dosage: UNK
     Route: 042
     Dates: start: 20180319, end: 20180321
  18. ALBUTEROL\IPRATROPIUM [Concomitant]
     Active Substance: ALBUTEROL\IPRATROPIUM
     Indication: Acute respiratory failure
     Dosage: UNK
     Route: 055
     Dates: start: 20180319, end: 20180319
  19. KETAMINE [Concomitant]
     Active Substance: KETAMINE
     Indication: Sedation
     Dosage: UNK
     Route: 042
     Dates: start: 20180319, end: 20180319
  20. LORAZEPAM [Concomitant]
     Active Substance: LORAZEPAM
     Indication: Anxiety
     Dosage: UNK
     Route: 042
     Dates: start: 20180319, end: 20180319
  21. LORAZEPAM [Concomitant]
     Active Substance: LORAZEPAM
     Indication: Acute respiratory failure
     Dosage: UNK
     Route: 042
     Dates: start: 20180323, end: 20180323
  22. PHENYLEPHRINE [Concomitant]
     Active Substance: PHENYLEPHRINE HYDROCHLORIDE
     Indication: Hypotension
     Dosage: UNK
     Route: 042
     Dates: start: 20180319, end: 20180319
  23. PROPOFOL [Concomitant]
     Active Substance: PROPOFOL
     Indication: Sedation
     Dosage: UNK
     Route: 042
     Dates: start: 20180319, end: 20180319
  24. PROPOFOL [Concomitant]
     Active Substance: PROPOFOL
     Indication: Anaesthesia
     Dosage: UNK
     Route: 042
     Dates: start: 20180319, end: 20180323
  25. SODIUM CHLORIDE [Concomitant]
     Active Substance: SODIUM CHLORIDE
     Indication: Hypotension
     Dosage: UNK
     Route: 042
     Dates: start: 20180319, end: 20180319
  26. SUCCINYLCHOLINE [Concomitant]
     Active Substance: SUCCINYLCHOLINE
     Indication: Muscle relaxant therapy
     Dosage: UNK
     Route: 042
     Dates: start: 20180319, end: 20180319
  27. ALBUTEROL [Concomitant]
     Active Substance: ALBUTEROL
     Indication: Acute respiratory failure
     Dosage: UNK
     Route: 055
     Dates: start: 20180319, end: 20180319
  28. AZITHROMYCIN [Concomitant]
     Active Substance: AZITHROMYCIN
     Indication: Pyrexia
     Dosage: UNK
     Route: 050
     Dates: start: 20180319, end: 20180319
  29. CEFTRIAXONE [Concomitant]
     Active Substance: CEFTRIAXONE
     Indication: Pyrexia
     Dosage: UNK
     Route: 042
     Dates: start: 20180319, end: 20180319
  30. CEFTRIAXONE [Concomitant]
     Active Substance: CEFTRIAXONE
     Indication: Metapneumovirus infection
  31. CHLORHEXIDINE [Concomitant]
     Active Substance: CHLORHEXIDINE
     Indication: Oral bacterial infection
     Dosage: UNK
     Route: 050
     Dates: start: 20180319, end: 20180323
  32. FAMOTIDINE [Concomitant]
     Active Substance: FAMOTIDINE
     Indication: Prophylaxis against gastrointestinal ulcer
     Dosage: UNK
     Route: 050
     Dates: start: 20180319, end: 20180323
  33. HEPARIN [Concomitant]
     Active Substance: HEPARIN SODIUM
     Indication: Thrombosis
     Dosage: UNK
     Route: 058
     Dates: start: 20180319, end: 20180323
  34. LACTATED RINGERS SOLUTION [Concomitant]
     Active Substance: CALCIUM CHLORIDE\POTASSIUM CHLORIDE\SODIUM CHLORIDE\SODIUM LACTATE
     Indication: Hypotension
     Dosage: UNK
     Route: 042
     Dates: start: 20180319, end: 20180319
  35. LACTATED RINGERS SOLUTION [Concomitant]
     Active Substance: CALCIUM CHLORIDE\POTASSIUM CHLORIDE\SODIUM CHLORIDE\SODIUM LACTATE
     Dosage: UNK
     Route: 042
     Dates: start: 20180320, end: 20180320
  36. LACTATED RINGERS SOLUTION [Concomitant]
     Active Substance: CALCIUM CHLORIDE\POTASSIUM CHLORIDE\SODIUM CHLORIDE\SODIUM LACTATE
     Dosage: UNK
     Route: 042
     Dates: start: 20180321, end: 20180321
  37. MAGNESIUM OXIDE [Concomitant]
     Active Substance: MAGNESIUM OXIDE
     Indication: Nutritional supplementation
     Dosage: UNK
     Route: 050
     Dates: start: 20180319, end: 20180319
  38. MORPHINE [Concomitant]
     Active Substance: MORPHINE
     Indication: Sedation
     Dosage: UNK
     Route: 042
     Dates: start: 20180319, end: 20180319
  39. MORPHINE [Concomitant]
     Active Substance: MORPHINE
     Dosage: UNK
     Route: 042
     Dates: start: 20180323, end: 20180323
  40. Ocular lubricant [Concomitant]
     Indication: Eye lubrication therapy
     Dosage: UNK
     Route: 061
     Dates: start: 20180319, end: 20180319
  41. CISATRACURIUM [Concomitant]
     Active Substance: CISATRACURIUM
     Indication: Muscle relaxant therapy
     Dosage: UNK
     Route: 042
     Dates: start: 20180319, end: 20180323
  42. FENTANYL [Concomitant]
     Active Substance: FENTANYL
     Indication: Sedation
     Dosage: UNK
     Route: 042
     Dates: start: 20180319, end: 20180323
  43. OXACILLIN [Concomitant]
     Active Substance: OXACILLIN SODIUM
     Indication: Metapneumovirus infection
     Dosage: UNK
     Route: 042
     Dates: start: 20180322, end: 20180323
  44. DULCOLAX NOS [Concomitant]
     Active Substance: BISACODYL OR DOCUSATE SODIUM
     Indication: Constipation prophylaxis
     Dosage: UNK
     Route: 054
     Dates: start: 20180323, end: 20180323
  45. POLYETHYLENE GLYCOL [Concomitant]
     Active Substance: POLYETHYLENE GLYCOL
     Indication: Constipation prophylaxis
     Dosage: UNK
     Route: 048
     Dates: start: 20180323, end: 20180323

REACTIONS (2)
  - Acute respiratory failure [Fatal]
  - Tracheomalacia [Not Recovered/Not Resolved]

NARRATIVE: CASE EVENT DATE: 20180319
